FAERS Safety Report 13467276 (Version 1)
Quarter: 2017Q2

REPORT INFORMATION
  Report Type: Spontaneous
  Country: US (occurrence: US)
  Receive Date: 20170421
  Receipt Date: 20170421
  Transmission Date: 20170830
  Serious: No
  Sender: FDA-Public Use
  Company Number: US-ZYDUS-012734

PATIENT
  Age: 80 Year
  Sex: Female

DRUGS (3)
  1. LEVOTHYROXINE. [Concomitant]
     Active Substance: LEVOTHYROXINE
  2. ISOSORBIDE. [Suspect]
     Active Substance: ISOSORBIDE
     Indication: ANGINA PECTORIS
     Route: 048
     Dates: start: 201608, end: 201609
  3. ATENOLOL/HYDROCHLOROTHIAZIDE [Concomitant]

REACTIONS (2)
  - Drug ineffective [Unknown]
  - Medication residue present [Unknown]

NARRATIVE: CASE EVENT DATE: 2016
